FAERS Safety Report 8472830-0 (Version None)
Quarter: 2012Q2

REPORT INFORMATION
  Report Type: 
  Country: None (occurrence: None)
  Receive Date: 20120627
  Receipt Date: 20120625
  Transmission Date: 20120825
  Serious: No
  Sender: FDA-Public Use
  Company Number: US-PFIZER INC-2012153523

PATIENT
  Sex: Male
  Weight: 95.238 kg

DRUGS (2)
  1. METHADONE [Concomitant]
     Indication: ARTHRITIS
     Dosage: UNK
  2. LYRICA [Suspect]
     Indication: ARTHRITIS
     Dosage: 100 MG, 2X/DAY
     Dates: start: 20120613

REACTIONS (1)
  - DIARRHOEA [None]
